FAERS Safety Report 25435052 (Version 4)
Quarter: 2025Q2

REPORT INFORMATION
  Report Type: Spontaneous
  Country: US (occurrence: US)
  Receive Date: 20250613
  Receipt Date: 20250620
  Transmission Date: 20250716
  Serious: Yes (Other)
  Sender: SANDOZ
  Company Number: US-SANDOZ-SDZ2025US040633

PATIENT
  Age: 74 Year
  Sex: Female
  Weight: 42.73 kg

DRUGS (5)
  1. AZITHROMYCIN [Suspect]
     Active Substance: AZITHROMYCIN
     Dosage: 250 MG, TIW
     Route: 048
  2. AZITHROMYCIN [Suspect]
     Active Substance: AZITHROMYCIN
     Indication: Mycobacterial infection
     Dosage: 500 MG, QD
     Route: 048
     Dates: start: 20250114, end: 20250509
  3. LAMPRENE [Suspect]
     Active Substance: CLOFAZIMINE
     Indication: Mycobacterial infection
     Dosage: 50 MG, QD
     Route: 048
     Dates: start: 20250220
  4. ETHAMBUTOL [Concomitant]
     Active Substance: ETHAMBUTOL HYDROCHLORIDE
     Indication: Mycobacterial infection
     Dosage: 600 MG, TIW
     Route: 065
     Dates: start: 20250117
  5. RIFABUTIN [Concomitant]
     Active Substance: RIFABUTIN
     Indication: Mycobacterial infection
     Dosage: 150 MG, QD
     Route: 048
     Dates: start: 20250127

REACTIONS (2)
  - Concomitant disease aggravated [Not Recovered/Not Resolved]
  - Deafness [Not Recovered/Not Resolved]

NARRATIVE: CASE EVENT DATE: 20250509
